FAERS Safety Report 16297656 (Version 2)
Quarter: 2019Q2

REPORT INFORMATION
  Report Type: Report from Study
  Country: MX (occurrence: MX)
  Receive Date: 20190510
  Receipt Date: 20190523
  Transmission Date: 20190711
  Serious: Yes (Other)
  Sender: FDA-Public Use
  Company Number: PHHY2019MX106892

PATIENT
  Sex: Female
  Weight: 60 kg

DRUGS (3)
  1. FEMARA [Suspect]
     Active Substance: LETROZOLE
     Indication: BREAST CANCER
     Dosage: 2.5 MG (1 DF), QD
     Route: 048
     Dates: start: 2016
  2. AFINITOR [Suspect]
     Active Substance: EVEROLIMUS
     Indication: BREAST CANCER
     Dosage: 5 MG (1 DF), QD
     Route: 065
     Dates: start: 201708
  3. AFINITOR [Suspect]
     Active Substance: EVEROLIMUS
     Dosage: 5 MG (1 DF), QD
     Route: 048
     Dates: start: 201801

REACTIONS (3)
  - Femur fracture [Unknown]
  - Haemoglobin decreased [Not Recovered/Not Resolved]
  - Vesical fistula [Unknown]
